FAERS Safety Report 9135017 (Version 1)
Quarter: 2013Q1

REPORT INFORMATION
  Report Type: Spontaneous
  Country: JP (occurrence: JP)
  Receive Date: 20130304
  Receipt Date: 20130304
  Transmission Date: 20140127
  Serious: Yes (Other)
  Sender: FDA-Public Use
  Company Number: JP-OTSUKA-US-2013-10355

PATIENT
  Age: 2 Month
  Sex: Male

DRUGS (4)
  1. BUSULFEX [Suspect]
     Indication: PRODUCT USED FOR UNKNOWN INDICATION
     Dosage: 0.98 MG/KG, UNKNOWN
     Route: 042
  2. BUSULFEX [Suspect]
     Dosage: 0.86 MG/KG, UNKNOWN
     Route: 042
  3. ETOPOSIDE [Concomitant]
     Dosage: 50 MG/KG, QD
     Route: 040
  4. CYCLOPHOSPHAMIDE MONOHYDRATE [Concomitant]
     Dosage: 50 MG/KG, QD
     Route: 040

REACTIONS (2)
  - Pulmonary hypertension [Recovered/Resolved]
  - Pulmonary veno-occlusive disease [Recovered/Resolved]
